FAERS Safety Report 12248309 (Version 1)
Quarter: 2016Q2

REPORT INFORMATION
  Report Type: Spontaneous
  Country: JP (occurrence: JP)
  Receive Date: 20160408
  Receipt Date: 20160408
  Transmission Date: 20160815
  Serious: Yes (Death, Life-Threatening, Hospitalization, Other)
  Sender: FDA-Public Use
  Company Number: JP-BRISTOL-MYERS SQUIBB COMPANY-BMS-2015-050722

PATIENT
  Age: 80 Year
  Sex: Male
  Weight: 70 kg

DRUGS (13)
  1. ELIQUIS [Suspect]
     Active Substance: APIXABAN
     Dosage: 2.5 MG, UNK
     Route: 050
     Dates: start: 20150705
  2. ARTIST [Concomitant]
     Active Substance: CARVEDILOL
     Indication: PRODUCT USED FOR UNKNOWN INDICATION
     Route: 065
  3. EDARAVONE [Concomitant]
     Active Substance: EDARAVONE
     Indication: HAEMORRHAGIC INFARCTION
     Dosage: 30 MG, BID
     Route: 041
     Dates: start: 20150706, end: 20150707
  4. ELIQUIS [Suspect]
     Active Substance: APIXABAN
     Indication: CEREBROVASCULAR ACCIDENT PROPHYLAXIS
     Dosage: 2.5 MG, BID
     Route: 048
     Dates: start: 20150501
  5. LANSOPRAZOLE. [Concomitant]
     Active Substance: LANSOPRAZOLE
     Indication: PRODUCT USED FOR UNKNOWN INDICATION
     Route: 065
  6. OMEPRAL                            /00661201/ [Concomitant]
     Active Substance: OMEPRAZOLE
     Indication: PROPHYLAXIS
     Dosage: 20 MG, BID
     Route: 042
     Dates: start: 20150706, end: 20150707
  7. AMLODIPINE [Concomitant]
     Active Substance: AMLODIPINE BESYLATE
     Indication: PRODUCT USED FOR UNKNOWN INDICATION
     Route: 065
  8. CEFTRIAXONE. [Concomitant]
     Active Substance: CEFTRIAXONE
     Indication: PRODUCT USED FOR UNKNOWN INDICATION
     Dosage: 1 G, QD
     Route: 041
     Dates: start: 20150706, end: 20150707
  9. ELIQUIS [Suspect]
     Active Substance: APIXABAN
     Dosage: UNK
     Route: 065
     Dates: end: 20150701
  10. LASIX [Concomitant]
     Active Substance: FUROSEMIDE
     Indication: PRODUCT USED FOR UNKNOWN INDICATION
     Route: 065
  11. GLYPOSE [Concomitant]
     Active Substance: FRUCTOSE\GLYCERIN
     Indication: HAEMORRHAGIC INFARCTION
     Dosage: 200 ML, BID
     Route: 041
     Dates: start: 20150706, end: 20150707
  12. HORIZON [Concomitant]
     Active Substance: DIAZEPAM
     Indication: PRODUCT USED FOR UNKNOWN INDICATION
     Dosage: 5 MG, QD
     Route: 042
     Dates: start: 20150706, end: 20150707
  13. ALEVIATIN WITH PHENOBARBITAL [Concomitant]
     Indication: PRODUCT USED FOR UNKNOWN INDICATION
     Dosage: 250 MG, QD
     Route: 042
     Dates: start: 20150706, end: 20150707

REACTIONS (4)
  - Cerebral haemorrhage [Fatal]
  - Cerebral infarction [Unknown]
  - Polypectomy [Unknown]
  - Polyp [Unknown]

NARRATIVE: CASE EVENT DATE: 20150703
